FAERS Safety Report 20799906 (Version 2)
Quarter: 2023Q1

REPORT INFORMATION
  Report Type: Spontaneous
  Country: GB (occurrence: GB)
  Receive Date: 20220509
  Receipt Date: 20230310
  Transmission Date: 20230417
  Serious: Yes (Disabling, Other)
  Sender: FDA-Public Use
  Company Number: None

PATIENT
  Age: 43 Year
  Sex: Female

DRUGS (1)
  1. CIPROFLOXACIN [Suspect]
     Active Substance: CIPROFLOXACIN
     Indication: Otitis externa
     Route: 048
     Dates: start: 20220301, end: 20220306

REACTIONS (47)
  - Neuralgia [Not Recovered/Not Resolved]
  - Malaise [Not Recovered/Not Resolved]
  - Anxiety [Not Recovered/Not Resolved]
  - Band sensation [Not Recovered/Not Resolved]
  - Depression [Unknown]
  - Suicidal ideation [Unknown]
  - Muscle spasms [Unknown]
  - Muscle twitching [Unknown]
  - Myalgia [Unknown]
  - Arthralgia [Unknown]
  - Tendon pain [Unknown]
  - Spinal pain [Unknown]
  - Vertigo [Unknown]
  - Dizziness [Unknown]
  - Tachycardia [Unknown]
  - Postural orthostatic tachycardia syndrome [Unknown]
  - Disturbance in attention [Unknown]
  - Memory impairment [Unknown]
  - Feeling abnormal [Unknown]
  - Confusional state [Unknown]
  - Coordination abnormal [Unknown]
  - Tremor [Unknown]
  - Asthenia [Unknown]
  - Fatigue [Unknown]
  - Pain in extremity [Unknown]
  - Burning sensation [Unknown]
  - Muscular weakness [Unknown]
  - Decreased appetite [Unknown]
  - Photophobia [Unknown]
  - Tinnitus [Unknown]
  - Hyperacusis [Unknown]
  - Dyskinesia [Unknown]
  - Insomnia [Unknown]
  - Food allergy [Unknown]
  - Constipation [Unknown]
  - Diarrhoea [Unknown]
  - Nightmare [Unknown]
  - Depersonalisation/derealisation disorder [Unknown]
  - Seizure [Unknown]
  - Photosensitivity reaction [Unknown]
  - Dehydration [Unknown]
  - Paraesthesia [Unknown]
  - Electric shock sensation [Unknown]
  - Neuralgia [Unknown]
  - Hypoaesthesia [Unknown]
  - Gait disturbance [Unknown]
  - Post-traumatic stress disorder [Unknown]

NARRATIVE: CASE EVENT DATE: 20220302
